FAERS Safety Report 20542604 (Version 1)
Quarter: 2022Q1

REPORT INFORMATION
  Report Type: Spontaneous
  Country: SK (occurrence: SK)
  Receive Date: 20220302
  Receipt Date: 20220302
  Transmission Date: 20220423
  Serious: Yes (Other)
  Sender: FDA-Public Use
  Company Number: SK-PHARMAGEN-PHARMAGEN20220111a_Lit

PATIENT
  Sex: Female

DRUGS (1)
  1. LETROZOLE [Suspect]
     Active Substance: LETROZOLE
     Indication: Albright^s disease
     Dosage: UNK

REACTIONS (2)
  - Genital haemorrhage [Recovered/Resolved]
  - Off label use [Recovered/Resolved]
